FAERS Safety Report 4842805-9 (Version None)
Quarter: 2005Q4

REPORT INFORMATION
  Report Type: 
  Country: None (occurrence: None)
  Receive Date: 20051125
  Receipt Date: 20051114
  Transmission Date: 20060501
  Serious: Yes (Other)
  Sender: FDA-Public Use
  Company Number: 20050232

PATIENT
  Age: 71 Year
  Sex: Female
  Weight: 84.369 kg

DRUGS (10)
  1. LIPITOR [Suspect]
     Indication: HYPERLIPIDAEMIA
     Dosage: 20 MG (20 MG 1 IN 1 D_
     Dates: start: 20010904, end: 20050801
  2. TRAVATAN [Suspect]
     Dosage: OPTHALAMIC
     Route: 047
  3. VALSARTAN [Concomitant]
  4. TOPROL-XL [Concomitant]
  5. PREVACID [Concomitant]
  6. VYTORIN [Concomitant]
  7. ECOTRIN (ACETYLSALICYLIC ACID) [Concomitant]
  8. ZOCOR [Concomitant]
  9. TOPROL-XL [Concomitant]
  10. ECOTRIN (ACETYLSALICYLIC ACID) [Concomitant]

REACTIONS (8)
  - CATARACT [None]
  - DIVERTICULUM [None]
  - EYE DISORDER [None]
  - EYE INJURY [None]
  - INTRAOCULAR PRESSURE INCREASED [None]
  - IRITIS [None]
  - MYALGIA [None]
  - THERAPY NON-RESPONDER [None]
